FAERS Safety Report 17609830 (Version 1)
Quarter: 2020Q1

REPORT INFORMATION
  Report Type: Spontaneous
  Country: US (occurrence: US)
  Receive Date: 20200330
  Receipt Date: 20200330
  Transmission Date: 20200409
  Serious: Yes (Hospitalization)
  Sender: FDA-Public Use
  Company Number: None

PATIENT
  Age: 77 Year
  Sex: Female

DRUGS (16)
  1. DIGOXIN. [Concomitant]
     Active Substance: DIGOXIN
  2. TYLENOL [Concomitant]
     Active Substance: ACETAMINOPHEN
  3. ZADITOR OPHT DROP [Concomitant]
  4. ALLOPURINOL. [Concomitant]
     Active Substance: ALLOPURINOL
  5. COMBIVENT RESPIMAT [Concomitant]
     Active Substance: ALBUTEROL SULFATE\IPRATROPIUM BROMIDE
  6. LEXAPRO [Concomitant]
     Active Substance: ESCITALOPRAM OXALATE
  7. OPSUMIT [Suspect]
     Active Substance: MACITENTAN
     Indication: PULMONARY ARTERIAL HYPERTENSION
     Route: 048
     Dates: start: 201705
  8. SILDENAFIL. [Concomitant]
     Active Substance: SILDENAFIL
  9. LASIX [Concomitant]
     Active Substance: FUROSEMIDE
  10. VITAMIN D3 [Concomitant]
     Active Substance: CHOLECALCIFEROL
  11. CARBAMIDE PEROXIDE EAR DROP [Concomitant]
  12. FERROUS SULFATE. [Concomitant]
     Active Substance: FERROUS SULFATE
  13. COLACE [Concomitant]
     Active Substance: DOCUSATE SODIUM
  14. FLONASE [Concomitant]
     Active Substance: FLUTICASONE PROPIONATE
  15. LIPITOR [Concomitant]
     Active Substance: ATORVASTATIN CALCIUM
  16. CALCIUM CARBONATE-VIT D3 [Concomitant]

REACTIONS (2)
  - Dyspnoea [None]
  - Influenza A virus test positive [None]

NARRATIVE: CASE EVENT DATE: 20200221
